FAERS Safety Report 8465031-3 (Version None)
Quarter: 2012Q2

REPORT INFORMATION
  Report Type: 
  Country: None (occurrence: None)
  Receive Date: 20120618
  Receipt Date: 20120605
  Transmission Date: 20120825
  Serious: Yes (Hospitalization, Other)
  Sender: FDA-Public Use
  Company Number: 2012-000140

PATIENT
  Age: 64 Year
  Sex: Female
  Weight: 72.6 kg

DRUGS (17)
  1. LISINOPRIL [Concomitant]
  2. AMBIEN [Concomitant]
  3. FOSAMAX [Suspect]
     Indication: OSTEOPENIA
     Dosage: 70 MG ONCE WEEKLY, ORAL
     Route: 048
     Dates: start: 20031219, end: 20060622
  4. COLACE (DOCUSATE SODIUM) [Concomitant]
  5. COMPAZINE /00013304/ (PROCHLORPERAZINE MALEATE) [Concomitant]
  6. ACTONEL [Suspect]
     Indication: OSTEOPENIA
     Dosage: 35 MG ONCE WEEKLY, ORAL
     Route: 048
     Dates: start: 20060622, end: 20081106
  7. REMERON [Concomitant]
  8. FLEXERIL [Concomitant]
  9. EFFEXOR [Concomitant]
  10. ASPIRIN [Concomitant]
  11. HYDROCHLOROTHIAZIDE [Concomitant]
  12. FAMOTIDINE [Concomitant]
  13. ALENDRONATE SODIUM [Suspect]
     Dosage: 70 MG, 1/WEEK, ORAL
     Route: 048
     Dates: start: 20081106, end: 20120301
  14. NIACIN FLUSH FREE (INOSITOL NICOTINATE) [Concomitant]
  15. VICODIN HP (HYDROCODONE BITARTRATE, PARACETAMOL) [Concomitant]
  16. KLONOPIN [Concomitant]
  17. PAXIL [Concomitant]

REACTIONS (22)
  - FALL [None]
  - POSTOPERATIVE WOUND INFECTION [None]
  - BONE GRAFT [None]
  - FEMUR FRACTURE [None]
  - MYALGIA [None]
  - BONE LOSS [None]
  - DEVICE FAILURE [None]
  - LIMB ASYMMETRY [None]
  - ENTEROBACTER TEST POSITIVE [None]
  - MUSCULAR WEAKNESS [None]
  - NEUROMYOPATHY [None]
  - LIP AND/OR ORAL CAVITY CANCER STAGE IV [None]
  - NEOPLASM RECURRENCE [None]
  - GAIT DISTURBANCE [None]
  - PROCEDURAL PAIN [None]
  - POSTOPERATIVE HETEROTOPIC CALCIFICATION [None]
  - TRENDELENBURG'S SYMPTOM [None]
  - FRACTURE NONUNION [None]
  - ARTHRALGIA [None]
  - FRACTURE DISPLACEMENT [None]
  - BONE FRAGMENTATION [None]
  - POST PROCEDURAL DRAINAGE [None]
